FAERS Safety Report 9306268 (Version 1)
Quarter: 2013Q1

REPORT INFORMATION
  Report Type: Spontaneous
  Country: US (occurrence: None)
  Receive Date: 20130304
  Receipt Date: 20130304
  Transmission Date: 20140127
  Serious: Yes (Hospitalization)
  Sender: FDA-Public Use
  Company Number: 145274-1

PATIENT
  Age: 75 Year
  Sex: Male
  Weight: 63 kg

DRUGS (1)
  1. LEUCOVORIN CALCIUM FOR INJ. 50MG-BEDFORD LABS, INC. [Suspect]
     Indication: RECTAL CANCER
     Dosage: BLINDED
     Route: 042
     Dates: start: 20120501

REACTIONS (5)
  - Intestinal obstruction [None]
  - Malaise [None]
  - Weight decreased [None]
  - Dysuria [None]
  - Constipation [None]
